FAERS Safety Report 21142972 (Version 2)
Quarter: 2023Q1

REPORT INFORMATION
  Report Type: Report from Study
  Country: JP (occurrence: JP)
  Receive Date: 20220728
  Receipt Date: 20230201
  Transmission Date: 20230417
  Serious: No
  Sender: FDA-Public Use
  Company Number: JP-EPIZYME, INC-2022JPEPIZYME0637

PATIENT

DRUGS (5)
  1. TAZVERIK [Suspect]
     Active Substance: TAZEMETOSTAT HYDROBROMIDE
     Indication: Follicular lymphoma
     Dosage: 1600 MG, QD
     Route: 048
     Dates: start: 20220324, end: 20220408
  2. TAZVERIK [Suspect]
     Active Substance: TAZEMETOSTAT HYDROBROMIDE
     Dosage: 1600 MG, QD
     Route: 048
     Dates: start: 20220513
  3. BARACLUDE [Concomitant]
     Active Substance: ENTECAVIR
     Indication: Infection prophylaxis
     Dosage: UNK
     Dates: start: 20220324
  4. SULFAMETHOXAZOLE\TRIMETHOPRIM [Concomitant]
     Active Substance: SULFAMETHOXAZOLE\TRIMETHOPRIM
     Indication: Infection prophylaxis
     Dosage: UNK
     Dates: start: 20220324
  5. ACYCLOVIR [Concomitant]
     Active Substance: ACYCLOVIR
     Indication: Infection prophylaxis
     Dosage: UNK
     Dates: start: 20220324

REACTIONS (1)
  - Hepatocellular injury [Recovered/Resolved]

NARRATIVE: CASE EVENT DATE: 20220331
